FAERS Safety Report 11198913 (Version 1)
Quarter: 2015Q2

REPORT INFORMATION
  Report Type: Report from Study
  Country: CO (occurrence: CO)
  Receive Date: 20150618
  Receipt Date: 20150618
  Transmission Date: 20150821
  Serious: Yes (Life-Threatening)
  Sender: FDA-Public Use
  Company Number: CO-EMD SERONO-8030322

PATIENT
  Age: 15 Year
  Sex: Male
  Weight: 45 kg

DRUGS (1)
  1. SAIZEN [Suspect]
     Active Substance: SOMATROPIN
     Indication: PRECOCIOUS PUBERTY
     Route: 058
     Dates: start: 20140611

REACTIONS (4)
  - Pituitary enlargement [Unknown]
  - Back pain [Unknown]
  - Off label use [Unknown]
  - Scoliosis [Unknown]

NARRATIVE: CASE EVENT DATE: 20150501
